FAERS Safety Report 5294375-1 (Version None)
Quarter: 2007Q2

REPORT INFORMATION
  Report Type: 
  Country: None (occurrence: None)
  Receive Date: 20070409
  Receipt Date: 20070409
  Transmission Date: 20071010
  Serious: Yes (Other)
  Sender: FDA-Public Use
  Company Number: None

PATIENT
  Age: 18 Year
  Sex: Male
  Weight: 58.9676 kg

DRUGS (1)
  1. ISOTRETINOIN [Suspect]
     Indication: ACNE CYSTIC
     Dosage: 20 MG PO Q DAY
     Route: 048
     Dates: start: 20061226, end: 20070406

REACTIONS (3)
  - ABSCESS [None]
  - ACNE [None]
  - CONDITION AGGRAVATED [None]
